FAERS Safety Report 8170869-6 (Version None)
Quarter: 2012Q1

REPORT INFORMATION
  Report Type: 
  Country: None (occurrence: None)
  Receive Date: 20120228
  Receipt Date: 20120221
  Transmission Date: 20120608
  Serious: Yes (Death)
  Sender: FDA-Public Use
  Company Number: JP-UCBSA-051814

PATIENT
  Age: 70 Year
  Sex: Male

DRUGS (2)
  1. VALPROATE SODIUM [Concomitant]
     Indication: PARTIAL SEIZURES WITH SECONDARY GENERALISATION
     Route: 048
  2. KEPPRA [Suspect]
     Indication: PARTIAL SEIZURES WITH SECONDARY GENERALISATION
     Route: 048
     Dates: start: 20111031, end: 20111120

REACTIONS (2)
  - DEATH [None]
  - PNEUMONIA ASPIRATION [None]
